FAERS Safety Report 4472860-X (Version None)
Quarter: 2004Q4

REPORT INFORMATION
  Report Type: 
  Country: None (occurrence: None)
  Receive Date: 20041012
  Receipt Date: 20041012
  Transmission Date: 20050328
  Serious: Yes (Hospitalization)
  Sender: FDA-Public Use
  Company Number: None

PATIENT
  Age: 58 Year
  Sex: Male
  Weight: 86.637 kg

DRUGS (13)
  1. CAPECITABINE 2000 MG/M2 PO AS 2 DIVIDED DOSES DAILY [Suspect]
     Indication: PANCREATIC CARCINOMA
     Dosage: 2000 MG/M2 PO QD
     Route: 048
     Dates: start: 20040915, end: 20040929
  2. OXALIPLATIN 130 MG/M3 ONCE EVERY 3 WEEKS [Suspect]
     Indication: PANCREATIC CARCINOMA
     Dosage: 130 MG/M3 IV
     Route: 042
     Dates: start: 20040915
  3. MS CONTIN [Concomitant]
  4. RITALIN [Concomitant]
  5. LOVENOX [Concomitant]
  6. LORATADINE [Concomitant]
  7. ADVAIR DISKUS 100/50 [Concomitant]
  8. RHINOCORT [Concomitant]
  9. COLACE [Concomitant]
  10. SENNA [Concomitant]
  11. ALEVE [Concomitant]
  12. MULTI-VITAMIN [Concomitant]
  13. ERYTHROPROIETIN [Concomitant]

REACTIONS (5)
  - ASTERIXIS [None]
  - DEHYDRATION [None]
  - ENCEPHALOPATHY [None]
  - HEPATIC FAILURE [None]
  - TACHYCARDIA [None]
